FAERS Safety Report 7618598-9 (Version None)
Quarter: 2011Q3

REPORT INFORMATION
  Report Type: 
  Country: None (occurrence: None)
  Receive Date: 20110718
  Receipt Date: 20110714
  Transmission Date: 20111222
  Serious: Yes (Life-Threatening, Hospitalization, Other)
  Sender: FDA-Public Use
  Company Number: US-BRISTOL-MYERS SQUIBB COMPANY-15765324

PATIENT
  Age: 68 Year
  Sex: Male

DRUGS (7)
  1. NPH INSULIN [Suspect]
     Indication: DIABETES MELLITUS
     Dosage: 1 DF:100 MICRO MOL
  2. ASPIRIN [Concomitant]
     Dosage: 1 DF={ 100 MG ON 14DEC10,11JUN10,14SEP10,09JUN11 + 19MAY11.
  3. BLINDED: SAXAGLIPTIN [Suspect]
     Indication: TYPE 2 DIABETES MELLITUS
     Dosage: INTERRUPTED ON 13JAN2011,RESTAT ON 04FEB2011
     Dates: start: 20100614
  4. METFORMIN HCL [Suspect]
     Indication: TYPE 2 DIABETES MELLITUS
     Dosage: UNK-03FEB11,800MG 04FEB11-CONT,500MG
  5. GLYBURIDE [Suspect]
     Indication: DIABETES MELLITUS
  6. PLACEBO [Suspect]
     Indication: TYPE 2 DIABETES MELLITUS
     Dosage: INTERRUPTED ON 13JAN11,RESTAT ON 04FEB11
     Dates: start: 20100614
  7. NIACIN [Concomitant]

REACTIONS (4)
  - ACUTE RESPIRATORY FAILURE [None]
  - PANCREATITIS ACUTE [None]
  - RENAL FAILURE ACUTE [None]
  - PNEUMONIA [None]
